FAERS Safety Report 6358345-4 (Version None)
Quarter: 2009Q3

REPORT INFORMATION
  Report Type: 
  Country: None (occurrence: None)
  Receive Date: 20090916
  Receipt Date: 20090916
  Transmission Date: 20100115
  Serious: Yes (Hospitalization, Other)
  Sender: FDA-Public Use
  Company Number: US-PFIZER INC-2009213711

PATIENT
  Sex: Male
  Weight: 72.109 kg

DRUGS (5)
  1. DILANTIN [Suspect]
     Indication: CONVULSION
     Dosage: UNK
  2. CELEXA [Concomitant]
  3. PLAVIX [Concomitant]
  4. AMBIEN [Concomitant]
  5. XANAX [Concomitant]

REACTIONS (6)
  - ANTICONVULSANT DRUG LEVEL BELOW THERAPEUTIC [None]
  - ANTICONVULSANT DRUG LEVEL INCREASED [None]
  - AURA [None]
  - CEREBELLAR ATROPHY [None]
  - GAIT DISTURBANCE [None]
  - MUSCULAR WEAKNESS [None]
